FAERS Safety Report 12061055 (Version 3)
Quarter: 2016Q2

REPORT INFORMATION
  Report Type: Report from Study
  Country: KE (occurrence: KE)
  Receive Date: 20160210
  Receipt Date: 20160429
  Transmission Date: 20160815
  Serious: Yes (Death, Other)
  Sender: FDA-Public Use
  Company Number: PHHY2015KE094669

PATIENT
  Age: 33 Year
  Sex: Female

DRUGS (5)
  1. GLIVEC [Suspect]
     Active Substance: IMATINIB MESYLATE
     Dosage: 600 MG, UNK
     Route: 065
  2. DUPHALAC [Suspect]
     Active Substance: LACTULOSE
     Indication: CONSTIPATION
     Dosage: UNK
     Route: 065
     Dates: start: 20151125
  3. AUGMENTIN [Suspect]
     Active Substance: AMOXICILLIN\CLAVULANATE POTASSIUM
     Indication: SEPSIS
     Dosage: 3.6 G, QD
     Route: 065
     Dates: start: 20151126
  4. CLEXANE [Suspect]
     Active Substance: ENOXAPARIN SODIUM
     Indication: THROMBOSIS PROPHYLAXIS
     Dosage: 40 MG, QD
     Route: 065
     Dates: start: 20151126
  5. GLIVEC [Suspect]
     Active Substance: IMATINIB MESYLATE
     Indication: CHRONIC MYELOID LEUKAEMIA
     Dosage: 400 MG, QD
     Route: 065
     Dates: start: 20111129

REACTIONS (5)
  - Malignant neoplasm progression [Unknown]
  - Chronic myeloid leukaemia [Unknown]
  - Postpartum haemorrhage [Fatal]
  - Maternal exposure during pregnancy [Unknown]
  - Splenomegaly [Unknown]

NARRATIVE: CASE EVENT DATE: 201407
